FAERS Safety Report 5581416-7 (Version None)
Quarter: 2008Q1

REPORT INFORMATION
  Report Type: 
  Country: None (occurrence: None)
  Receive Date: 20080103
  Receipt Date: 20080103
  Transmission Date: 20080703
  Serious: Yes (Other)
  Sender: FDA-Public Use
  Company Number: None

PATIENT
  Age: 44 Year
  Sex: Female
  Weight: 54.4316 kg

DRUGS (1)
  1. VERSED [Suspect]
     Indication: PREOPERATIVE CARE
     Dates: start: 20060314, end: 20060314

REACTIONS (2)
  - ANXIETY [None]
  - DEPRESSION [None]
